FAERS Safety Report 6917653-6 (Version None)
Quarter: 2010Q3

REPORT INFORMATION
  Report Type: 
  Country: None (occurrence: None)
  Receive Date: 20100810
  Receipt Date: 20100727
  Transmission Date: 20110219
  Serious: Yes (Life-Threatening)
  Sender: FDA-Public Use
  Company Number: CN-MYLANLABS-2010S1013467

PATIENT
  Age: 1 Decade
  Sex: Male

DRUGS (2)
  1. PHENYTOIN [Suspect]
     Indication: GRAND MAL CONVULSION
     Dosage: 25 MG/KG/DAY [ROUTE NOT STATED]
  2. PHENOBARBITAL [Suspect]
     Indication: GRAND MAL CONVULSION
     Dosage: 25 MG/KG/DAY [ROUTE NOT STATED]

REACTIONS (2)
  - ATONIC SEIZURES [None]
  - OVERDOSE [None]
